FAERS Safety Report 6807252-9 (Version None)
Quarter: 2010Q2

REPORT INFORMATION
  Report Type: 
  Country: None (occurrence: None)
  Receive Date: 20100629
  Receipt Date: 20080811
  Transmission Date: 20101027
  Serious: No
  Sender: FDA-Public Use
  Company Number: US-PFIZER INC-2008067408

PATIENT
  Sex: Female
  Weight: 18.14 kg

DRUGS (3)
  1. ZYVOX [Suspect]
     Dates: start: 20080101
  2. LEVAQUIN [Suspect]
     Dates: start: 20080101, end: 20080810
  3. ALL OTHER THERAPEUTIC PRODUCTS [Concomitant]

REACTIONS (1)
  - OEDEMA PERIPHERAL [None]
